FAERS Safety Report 7569382-6 (Version None)
Quarter: 2011Q2

REPORT INFORMATION
  Report Type: 
  Country: None (occurrence: None)
  Receive Date: 20110623
  Receipt Date: 20110615
  Transmission Date: 20111010
  Serious: Yes (Hospitalization)
  Sender: FDA-Public Use
  Company Number: JP-MERCK-1106USA02574

PATIENT
  Age: 52 Year
  Sex: Male

DRUGS (3)
  1. JANUVIA [Suspect]
     Dosage: ADMINISTERING IN MORNING
     Route: 048
     Dates: start: 20110301, end: 20110401
  2. JANUVIA [Suspect]
     Dosage: ADMINISTERING IN MORNING
     Route: 048
     Dates: start: 20110101, end: 20110301
  3. AMARYL [Concomitant]
     Dosage: ADMINISTERING IN MORNING
     Route: 048

REACTIONS (2)
  - TINNITUS [None]
  - HYPERGLYCAEMIA [None]
